FAERS Safety Report 8013855-9 (Version None)
Quarter: 2011Q4

REPORT INFORMATION
  Report Type: 
  Country: None (occurrence: None)
  Receive Date: 20111229
  Receipt Date: 20111223
  Transmission Date: 20120403
  Serious: Yes (Other)
  Sender: FDA-Public Use
  Company Number: PHFR2010IE05566

PATIENT
  Sex: Male

DRUGS (10)
  1. COZAAR [Concomitant]
     Indication: HYPERTENSION
     Dosage: 50 MG, UNK
     Route: 048
  2. GLUCOPHAGE [Concomitant]
     Dosage: 500 MG, UNK
     Route: 048
  3. CLOZARIL [Suspect]
     Indication: SCHIZOPHRENIA, PARANOID TYPE
     Dosage: 250 MG MANE 450 MG NOCTE
     Route: 048
     Dates: start: 20010701
  4. VALPROIC ACID [Concomitant]
     Dosage: 400 MG
     Route: 048
  5. CLOZARIL [Suspect]
     Dates: start: 19931201
  6. DUPHALAC [Concomitant]
     Indication: CONSTIPATION
     Dosage: 15 MG, UNK
     Route: 048
  7. GLUCOPHAGE [Concomitant]
     Indication: DIABETES MELLITUS
     Dosage: 500 MG, BID
     Route: 048
  8. VALPROIC ACID [Concomitant]
     Dosage: 400 MG, BID
     Route: 048
  9. CLOZARIL [Suspect]
     Dosage: 700 MG DAILY
     Route: 048
     Dates: start: 19930101
  10. ZOLPIDEM [Concomitant]
     Dosage: 10 MG, UNK
     Route: 048

REACTIONS (4)
  - LYMPHOCYTE COUNT INCREASED [None]
  - LYMPHOCYTE MORPHOLOGY ABNORMAL [None]
  - PLATELET COUNT DECREASED [None]
  - WHITE BLOOD CELL COUNT INCREASED [None]
